FAERS Safety Report 21362530 (Version 2)
Quarter: 2022Q4

REPORT INFORMATION
  Report Type: Spontaneous
  Country: US (occurrence: US)
  Receive Date: 20220922
  Receipt Date: 20221007
  Transmission Date: 20230113
  Serious: Yes (Hospitalization)
  Sender: FDA-Public Use
  Company Number: US-TEVA-2022-US-2074162

PATIENT
  Age: 16 Year
  Sex: Female

DRUGS (1)
  1. METHYLPREDNISOLONE [Suspect]
     Active Substance: METHYLPREDNISOLONE
     Indication: Vasculitis
     Dosage: 1000 MILLIGRAM DAILY;
     Route: 042

REACTIONS (1)
  - Progressive multifocal leukoencephalopathy [Recovering/Resolving]
